FAERS Safety Report 5970042-3 (Version None)
Quarter: 2008Q4

REPORT INFORMATION
  Report Type: 
  Country: None (occurrence: None)
  Receive Date: 20081126
  Receipt Date: 20081009
  Transmission Date: 20090506
  Serious: No
  Sender: FDA-Public Use
  Company Number: US-ABBOTT-08P-163-0480672-00

PATIENT
  Sex: Male

DRUGS (3)
  1. SIMCOR [Suspect]
     Indication: BLOOD CHOLESTEROL INCREASED
     Dosage: 500/20MG DAILY
     Route: 048
     Dates: start: 20080910
  2. PRINZIDE [Concomitant]
     Indication: BLOOD PRESSURE
     Dosage: 20/12.5MG
     Route: 048
     Dates: start: 20080901
  3. OMEPRAZOLE [Concomitant]
     Indication: HIATUS HERNIA

REACTIONS (2)
  - FLUSHING [None]
  - HYPERHIDROSIS [None]
